FAERS Safety Report 11906774 (Version 1)
Quarter: 2016Q1

REPORT INFORMATION
  Report Type: Spontaneous
  Country: US (occurrence: None)
  Receive Date: 20160108
  Receipt Date: 20160108
  Transmission Date: 20160526
  Serious: Yes (Life-Threatening, Hospitalization)
  Sender: FDA-Public Use
  Company Number: None

PATIENT
  Age: 90 Year
  Sex: Female
  Weight: 62.6 kg

DRUGS (10)
  1. BENAZEPRIL HCL [Concomitant]
     Active Substance: BENAZEPRIL HYDROCHLORIDE
  2. CARVEDILOL. [Concomitant]
     Active Substance: CARVEDILOL
  3. HYDROCHLOROTHIAZIDE. [Concomitant]
     Active Substance: HYDROCHLOROTHIAZIDE
  4. VISION HEALTH [Concomitant]
  5. WARFARIN [Concomitant]
     Active Substance: WARFARIN
  6. PENTOXIFYILINE ER [Concomitant]
  7. BABY ASPIRIN [Concomitant]
     Active Substance: ASPIRIN
  8. ROCEPHIN [Suspect]
     Active Substance: CEFTRIAXONE SODIUM
     Indication: URINARY TRACT INFECTION
     Route: 042
     Dates: start: 20151122
  9. AMLODIPINE [Concomitant]
     Active Substance: AMLODIPINE BESYLATE
  10. SIMVASTATIN. [Concomitant]
     Active Substance: SIMVASTATIN

REACTIONS (3)
  - Loss of consciousness [None]
  - Speech disorder [None]
  - Drug hypersensitivity [None]

NARRATIVE: CASE EVENT DATE: 20151122
